FAERS Safety Report 19055108 (Version 4)
Quarter: 2021Q4

REPORT INFORMATION
  Report Type: Other
  Country: US (occurrence: None)
  Receive Date: 20210325
  Receipt Date: 20211230
  Transmission Date: 20220303
  Serious: Yes (Other)
  Sender: FDA-Public Use
  Company Number: US-ROCHE-2790506

PATIENT
  Sex: Female

DRUGS (5)
  1. ACTEMRA [Suspect]
     Active Substance: TOCILIZUMAB
     Indication: Endophthalmitis
     Route: 058
     Dates: start: 202101
  2. ACTEMRA [Suspect]
     Active Substance: TOCILIZUMAB
  3. ACTEMRA [Suspect]
     Active Substance: TOCILIZUMAB
     Indication: Uveitis
  4. ACTEMRA [Suspect]
     Active Substance: TOCILIZUMAB
  5. ASPIRIN [Concomitant]
     Active Substance: ASPIRIN

REACTIONS (5)
  - Hypertension [Unknown]
  - Syncope [Unknown]
  - Off label use [Unknown]
  - Drug intolerance [Unknown]
  - Blood pressure decreased [Unknown]
